FAERS Safety Report 7131776-0 (Version None)
Quarter: 2010Q4

REPORT INFORMATION
  Report Type: 
  Country: None (occurrence: None)
  Receive Date: 20101202
  Receipt Date: 20101122
  Transmission Date: 20110411
  Serious: No
  Sender: FDA-Public Use
  Company Number: US-BIOGENIDEC-2010BI041580

PATIENT
  Sex: Male

DRUGS (1)
  1. AVONEX [Suspect]
     Indication: MULTIPLE SCLEROSIS
     Route: 030
     Dates: start: 19990624

REACTIONS (5)
  - AGRAPHIA [None]
  - ARTHROPATHY [None]
  - DRUG INEFFECTIVE [None]
  - JOINT STIFFNESS [None]
  - MUSCULAR WEAKNESS [None]
